FAERS Safety Report 8670382 (Version 2)
Quarter: 2015Q1

REPORT INFORMATION
  Report Type: Report from Study
  Country: US (occurrence: US)
  Receive Date: 20120718
  Receipt Date: 20150129
  Transmission Date: 20150721
  Serious: Yes (Death)
  Sender: FDA-Public Use
  Company Number: US-ROCHE-1087990

PATIENT
  Age: 89 Year
  Sex: Female

DRUGS (5)
  1. LUCENTIS [Suspect]
     Active Substance: RANIBIZUMAB
     Indication: VEIN DISORDER
     Dosage: EVERY 5-8 WEEKS
     Route: 050
     Dates: start: 20090914, end: 20100125
  2. ZYMAR [Concomitant]
     Active Substance: GATIFLOXACIN
  3. BETADINE [Concomitant]
     Active Substance: POVIDONE-IODINE
  4. VIGAMOX [Concomitant]
     Active Substance: MOXIFLOXACIN HYDROCHLORIDE
  5. AVASTIN [Suspect]
     Active Substance: BEVACIZUMAB
     Indication: PRODUCT USED FOR UNKNOWN INDICATION
     Dosage: EVERY 6-8 WEEKS
     Route: 065
     Dates: start: 20071019, end: 20090629

REACTIONS (6)
  - Vision blurred [Unknown]
  - Off label use [Unknown]
  - Hypotension [Unknown]
  - Night blindness [Unknown]
  - Death [Fatal]
  - Cystoid macular oedema [Unknown]

NARRATIVE: CASE EVENT DATE: 20100325
